FAERS Safety Report 19533203 (Version 1)
Quarter: 2021Q3

REPORT INFORMATION
  Report Type: Spontaneous
  Country: US (occurrence: US)
  Receive Date: 20210713
  Receipt Date: 20210713
  Transmission Date: 20211014
  Serious: Yes (Other)
  Sender: FDA-Public Use
  Company Number: US-STRIDES ARCOLAB LIMITED-2021SP012502

PATIENT
  Age: 63 Year
  Sex: Male

DRUGS (5)
  1. RANITIDINE. [Suspect]
     Active Substance: RANITIDINE
     Indication: ABDOMINAL DISCOMFORT
  2. RANITIDINE. [Suspect]
     Active Substance: RANITIDINE
     Indication: GASTROOESOPHAGEAL REFLUX DISEASE
  3. RANITIDINE. [Suspect]
     Active Substance: RANITIDINE
     Indication: DYSPEPSIA
  4. RANITIDINE. [Suspect]
     Active Substance: RANITIDINE
     Dosage: UNK
     Route: 048
     Dates: start: 198110, end: 201808
  5. RANITIDINE. [Suspect]
     Active Substance: RANITIDINE
     Indication: HYPERCHLORHYDRIA

REACTIONS (3)
  - Pancreatic carcinoma [Recovered/Resolved]
  - Musculoskeletal cancer [Unknown]
  - Bone cancer [Unknown]

NARRATIVE: CASE EVENT DATE: 20181001
